FAERS Safety Report 7455333-1 (Version None)
Quarter: 2011Q2

REPORT INFORMATION
  Report Type: 
  Country: None (occurrence: None)
  Receive Date: 20110503
  Receipt Date: 20110426
  Transmission Date: 20111010
  Serious: Yes (Hospitalization)
  Sender: FDA-Public Use
  Company Number: FR-B.I. PHARMACEUTICALS,INC./RIDGEFIELD-2009-FF-00834FF

PATIENT
  Sex: Male
  Weight: 112 kg

DRUGS (4)
  1. INNOHEP [Concomitant]
     Indication: ANTICOAGULANT THERAPY
     Dosage: 45000 NR
     Route: 048
     Dates: end: 20100616
  2. PRADAXA [Suspect]
     Indication: HIP ARTHROPLASTY
  3. LOVENOX [Concomitant]
     Indication: ANTICOAGULANT THERAPY
     Route: 048
     Dates: start: 20091201, end: 20091224
  4. PRADAXA [Suspect]
     Indication: THROMBOSIS PROPHYLAXIS
     Dosage: 220 MG
     Route: 048
     Dates: start: 20091124, end: 20091201

REACTIONS (3)
  - PULMONARY EMBOLISM [None]
  - DEEP VEIN THROMBOSIS [None]
  - DEVICE DISLOCATION [None]
